FAERS Safety Report 9620179 (Version 2)
Quarter: 2013Q4

REPORT INFORMATION
  Report Type: Spontaneous
  Country: FR (occurrence: FR)
  Receive Date: 20131014
  Receipt Date: 20131028
  Transmission Date: 20140711
  Serious: Yes (Hospitalization, Other)
  Sender: FDA-Public Use
  Company Number: FR-RB-059396-13

PATIENT
  Age: 26 Year
  Sex: Male

DRUGS (2)
  1. BUPRENORPHINE UNSPECIFIED [Suspect]
     Dosage: DOSING DETAILS UNKNOWN
     Route: 065
  2. BUPRENORPHINE UNSPECIFIED [Suspect]
     Indication: DRUG DEPENDENCE
     Dosage: INJECTED 8 MG INTO DEEP DOSRAL VEIN OF HIS PENIS
     Route: 042

REACTIONS (7)
  - Intentional drug misuse [Recovered/Resolved]
  - Peripheral ischaemia [Recovered/Resolved]
  - Penile pain [Recovered/Resolved]
  - Urinary retention [Recovered/Resolved]
  - Enterobacter infection [Recovered/Resolved]
  - Urethral discharge [Recovered/Resolved]
  - Penile exfoliation [Recovered/Resolved]
